FAERS Safety Report 18356177 (Version 2)
Quarter: 2020Q4

REPORT INFORMATION
  Report Type: Report from Study
  Country: CA (occurrence: CA)
  Receive Date: 20201007
  Receipt Date: 20201125
  Transmission Date: 20210114
  Serious: Yes (Other)
  Sender: FDA-Public Use
  Company Number: CA-JNJFOC-20200949933

PATIENT
  Age: 36 Year
  Sex: Female

DRUGS (4)
  1. REMICADE [Suspect]
     Active Substance: INFLIXIMAB
     Indication: HIDRADENITIS
     Dosage: ON 25-SEP-2020 TEMPORARILY STOPPED DRUG DUE TO EVENT. ON 17-NOV-2020, PATIENT RECEIVED 8TH DOSE OF 8
     Route: 042
     Dates: start: 20191220
  2. SOLU-CORTEF [Concomitant]
     Active Substance: HYDROCORTISONE SODIUM SUCCINATE
     Indication: PREMEDICATION
     Route: 065
  3. TYLENOL [Concomitant]
     Active Substance: ACETAMINOPHEN
     Indication: PREMEDICATION
     Route: 065
     Dates: start: 20201117
  4. AERIUS [Concomitant]
     Indication: PREMEDICATION
     Route: 065
     Dates: start: 20201117

REACTIONS (8)
  - Flushing [Recovered/Resolved]
  - Product use in unapproved indication [Unknown]
  - Infusion related reaction [Not Recovered/Not Resolved]
  - Feeling hot [Unknown]
  - Seasonal allergy [Unknown]
  - Palpitations [Not Recovered/Not Resolved]
  - Off label use [Unknown]
  - Chest discomfort [Not Recovered/Not Resolved]

NARRATIVE: CASE EVENT DATE: 20191220
